FAERS Safety Report 11694283 (Version 2)
Quarter: 2016Q1

REPORT INFORMATION
  Report Type: Spontaneous
  Country: JP (occurrence: JP)
  Receive Date: 20151103
  Receipt Date: 20160222
  Transmission Date: 20160525
  Serious: Yes (Other)
  Sender: FDA-Public Use
  Company Number: JP-JNJFOC-20151024472

PATIENT

DRUGS (1)
  1. ZYTIGA [Suspect]
     Active Substance: ABIRATERONE ACETATE
     Indication: PROSTATE CANCER
     Route: 048

REACTIONS (4)
  - Hyperglycaemia [Unknown]
  - Fall [Unknown]
  - Adverse event [Unknown]
  - Spinal compression fracture [Unknown]
